FAERS Safety Report 5473191-1 (Version None)
Quarter: 2007Q4

REPORT INFORMATION
  Report Type: 
  Country: None (occurrence: None)
  Receive Date: 20071001
  Receipt Date: 20070920
  Transmission Date: 20080405
  Serious: Yes (Hospitalization)
  Sender: FDA-Public Use
  Company Number: US-JNJFOC-20070904961

PATIENT
  Age: 39 Year
  Sex: Male

DRUGS (4)
  1. INFLIXIMAB [Suspect]
     Indication: CUTANEOUS LUPUS ERYTHEMATOSUS
  2. INFLIXIMAB [Suspect]
     Indication: PSORIASIS
  3. METHOTREXATE [Suspect]
     Dosage: INCREASED TO 25 MG/WEEK
  4. METHOTREXATE [Suspect]
     Indication: PSORIASIS
     Dosage: GIVEN FOR 1 MONTH

REACTIONS (1)
  - ARTHRITIS [None]
